FAERS Safety Report 9787544 (Version 1)
Quarter: 2013Q4

REPORT INFORMATION
  Report Type: Spontaneous
  Country: US (occurrence: None)
  Receive Date: 20131224
  Receipt Date: 20131224
  Transmission Date: 20140711
  Serious: Yes (Hospitalization)
  Sender: FDA-Public Use
  Company Number: UTC-042211

PATIENT
  Age: 46 Year
  Sex: Female
  Weight: 58.63 kg

DRUGS (4)
  1. REMODULIN [Suspect]
     Indication: PULMONARY ARTERIAL HYPERTENSION
     Dosage: 37.44 UG/KG (0.026 UG/KG, 1 IN 1 MIN)
     Route: 058
     Dates: start: 20130514
  2. REVATIO (SOLDENAFIL CITRATE) (UNKNOWN) [Concomitant]
  3. WARFARIN (UNKNOWN) [Concomitant]
  4. TRACLEER (BOSENTAN) (UNNOWN) [Concomitant]

REACTIONS (1)
  - Infusion site infection [None]
